FAERS Safety Report 18323706 (Version 2)
Quarter: 2020Q4

REPORT INFORMATION
  Report Type: Spontaneous
  Country: US (occurrence: US)
  Receive Date: 20200929
  Receipt Date: 20201007
  Transmission Date: 20210113
  Serious: Yes (Hospitalization, Other)
  Sender: FDA-Public Use
  Company Number: US-LUPIN PHARMACEUTICALS INC.-2020-03086

PATIENT
  Age: 36 Year
  Sex: Female

DRUGS (8)
  1. OXYCODONE [Suspect]
     Active Substance: OXYCODONE
     Dosage: UNK (DECREASED BY 72% FROM HER PRIOR BASELINE)
     Route: 065
  2. OXYCODONE [Suspect]
     Active Substance: OXYCODONE
     Dosage: 30 MILLIGRAM, BID (EVERY 12-HOUR)
     Route: 048
  3. OXYCODONE [Suspect]
     Active Substance: OXYCODONE
     Indication: MIGRAINE
     Dosage: 20 MILLIGRAM, PRN (AT BED TIME)
     Route: 065
  4. OXYCODONE [Suspect]
     Active Substance: OXYCODONE
     Dosage: 10 MILLIGRAM, PRN (EVERY 4-HOUR)
     Route: 048
  5. OXYCODONE [Suspect]
     Active Substance: OXYCODONE
     Dosage: 30 MILLIGRAM, QID (IMMEDIATE RELEASE, AS NEEDED)
     Route: 048
  6. OXYCODONE [Suspect]
     Active Substance: OXYCODONE
     Dosage: UNK (OPIOID REGIMEN WAS REDUCED BY 50% AFTER THE FIRST ACUPUNCTURE SESSION)
     Route: 065
  7. OXYCODONE [Suspect]
     Active Substance: OXYCODONE
     Indication: HEADACHE
     Dosage: 20 MILLIGRAM, PRN (IMMEDIATE RELEASE, AT BEDTIME PRN)
     Route: 048
  8. LAMOTRIGINE. [Suspect]
     Active Substance: LAMOTRIGINE
     Indication: BIPOLAR DISORDER
     Dosage: 200 MILLIGRAM, QD
     Route: 048

REACTIONS (5)
  - Weight decreased [Unknown]
  - Drug abuse [Recovered/Resolved]
  - Meningitis aseptic [Recovering/Resolving]
  - Medication overuse headache [Recovered/Resolved]
  - Bedridden [Recovering/Resolving]
